FAERS Safety Report 17420164 (Version 1)
Quarter: 2020Q1

REPORT INFORMATION
  Report Type: Spontaneous
  Country: US (occurrence: US)
  Receive Date: 20200214
  Receipt Date: 20200214
  Transmission Date: 20200409
  Serious: No
  Sender: FDA-Public Use
  Company Number: US-MYLANLABS-2020M1013311

PATIENT
  Sex: Male
  Weight: 136 kg

DRUGS (1)
  1. SILDENAFIL TABLETS USP [Suspect]
     Active Substance: SILDENAFIL
     Indication: PRODUCT USED FOR UNKNOWN INDICATION
     Dosage: 100 MILLIGRAM

REACTIONS (3)
  - Wrong technique in product usage process [Unknown]
  - Product availability issue [Unknown]
  - Drug ineffective [Unknown]
